FAERS Safety Report 5059894-1 (Version None)
Quarter: 2006Q3

REPORT INFORMATION
  Report Type: 
  Country: None (occurrence: None)
  Receive Date: 20060718
  Receipt Date: 20060630
  Transmission Date: 20061208
  Serious: Yes (Hospitalization)
  Sender: FDA-Public Use
  Company Number: JP200604003703

PATIENT
  Age: 40 Year
  Sex: Female
  Weight: 52 kg

DRUGS (6)
  1. ZYPREXA [Suspect]
     Indication: SCHIZOPHRENIA
     Dosage: 10 MG, DAILY (1/D), ORAL
     Route: 048
     Dates: end: 20050601
  2. ZYPREXA [Suspect]
     Indication: SCHIZOPHRENIA
     Dosage: 10 MG, DAILY (1/D), ORAL; SEE IMAGE
     Route: 048
     Dates: start: 20060405, end: 20060507
  3. ZYPREXA [Suspect]
     Indication: SCHIZOPHRENIA
     Dosage: 10 MG, DAILY (1/D), ORAL; SEE IMAGE
     Route: 048
     Dates: start: 20060508, end: 20060612
  4. ZYPREXA [Suspect]
     Indication: SCHIZOPHRENIA
     Dosage: 10 MG, DAILY (1/D), ORAL; SEE IMAGE
     Route: 048
     Dates: start: 20060613
  5. DEPAKENE-R /JPN/ (VALPROATE SODIUM) [Concomitant]
  6. DORAL [Concomitant]

REACTIONS (8)
  - AMENORRHOEA [None]
  - BLOOD PROLACTIN INCREASED [None]
  - CONDITION AGGRAVATED [None]
  - MENSTRUAL DISORDER [None]
  - OBSESSIVE THOUGHTS [None]
  - PIGMENTATION DISORDER [None]
  - PSYCHOTIC DISORDER [None]
  - SCHIZOPHRENIA [None]
